FAERS Safety Report 20475335 (Version 2)
Quarter: 2022Q2

REPORT INFORMATION
  Report Type: Report from Study
  Country: US (occurrence: US)
  Receive Date: 20220215
  Receipt Date: 20220401
  Transmission Date: 20220721
  Serious: No
  Sender: FDA-Public Use
  Company Number: US-BIOVITRUM-2021US12665

PATIENT
  Age: 57 Year
  Sex: Female

DRUGS (2)
  1. KINERET [Suspect]
     Active Substance: ANAKINRA
     Indication: Pericarditis rheumatic
     Route: 058
     Dates: start: 201904
  2. KINERET [Suspect]
     Active Substance: ANAKINRA
     Route: 058
     Dates: start: 20190503

REACTIONS (7)
  - Nasopharyngitis [Recovered/Resolved]
  - Pain [Unknown]
  - Dry throat [Unknown]
  - Feeling abnormal [Unknown]
  - Sinusitis [Unknown]
  - Product dose omission issue [Unknown]
  - Off label use [Not Recovered/Not Resolved]

NARRATIVE: CASE EVENT DATE: 20190401
